FAERS Safety Report 24093164 (Version 1)
Quarter: 2024Q3

REPORT INFORMATION
  Report Type: Spontaneous
  Country: CN (occurrence: CN)
  Receive Date: 20240715
  Receipt Date: 20240715
  Transmission Date: 20241016
  Serious: Yes (Other)
  Sender: WOODWARD PHARMA SERVICES
  Company Number: CN-WOODWARD-2024-CN-000261

PATIENT
  Age: 35 Year
  Sex: Female

DRUGS (2)
  1. RABEPRAZOLE SODIUM [Suspect]
     Active Substance: RABEPRAZOLE SODIUM
     Indication: Chronic gastritis
     Dosage: 20.0 MILLIGRAM(S) (20 MILLIGRAM(S), 1 IN 1 DAY)
     Route: 048
     Dates: start: 20240622, end: 20240628
  2. TEPRENONE [Suspect]
     Active Substance: TEPRENONE
     Dosage: 150.0 MILLIGRAM(S) (150 MILLIGRAM(S), 1 IN 1 DAY)
     Dates: start: 20240622, end: 20240628

REACTIONS (2)
  - Dermatitis allergic [Unknown]
  - Chest discomfort [Unknown]

NARRATIVE: CASE EVENT DATE: 20240623
